FAERS Safety Report 5894399-7 (Version None)
Quarter: 2008Q3

REPORT INFORMATION
  Report Type: 
  Country: None (occurrence: None)
  Receive Date: 20080922
  Receipt Date: 20080909
  Transmission Date: 20090109
  Serious: Yes (Hospitalization)
  Sender: FDA-Public Use
  Company Number: 2008BI021413

PATIENT
  Age: 54 Year
  Sex: Male

DRUGS (2)
  1. AVONEX [Suspect]
     Indication: MULTIPLE SCLEROSIS
     Dosage: 30 UG;QW;IM  30 UG;QW;IM
     Route: 030
     Dates: start: 20010601, end: 20030701
  2. AVONEX [Suspect]
     Indication: MULTIPLE SCLEROSIS
     Dosage: 30 UG;QW;IM  30 UG;QW;IM
     Route: 030
     Dates: start: 20030801

REACTIONS (2)
  - ATRIAL SEPTAL DEFECT [None]
  - EMBOLIC STROKE [None]
